FAERS Safety Report 7890291-7 (Version None)
Quarter: 2011Q4

REPORT INFORMATION
  Report Type: 
  Country: None (occurrence: None)
  Receive Date: 20111103
  Receipt Date: 20110805
  Transmission Date: 20120403
  Serious: Yes (Other)
  Sender: FDA-Public Use
  Company Number: US-AMGEN-USASP2011040009

PATIENT
  Sex: Male

DRUGS (7)
  1. LIVALO [Concomitant]
  2. ONGLYZA [Concomitant]
  3. METFORMIN HCL [Concomitant]
  4. PREDNISONE [Concomitant]
  5. ENBREL [Suspect]
     Indication: PSORIASIS
     Dosage: 50 MG, QWK
     Dates: start: 20090817
  6. GEMFIBROZIL [Concomitant]
  7. BENAZEPRIL/HCTZ [Concomitant]

REACTIONS (1)
  - SKIN CANCER [None]
